FAERS Safety Report 5273965-6 (Version None)
Quarter: 2007Q1

REPORT INFORMATION
  Report Type: 
  Country: None (occurrence: None)
  Receive Date: 20070323
  Receipt Date: 20070316
  Transmission Date: 20070707
  Serious: Yes (Life-Threatening, Hospitalization)
  Sender: FDA-Public Use
  Company Number: US-GLAXOSMITHKLINE-A0643630A

PATIENT
  Age: 54 Year
  Sex: Female
  Weight: 89 kg

DRUGS (2)
  1. LAPATINIB [Suspect]
     Dosage: 1250MG PER DAY
     Route: 048
     Dates: start: 20070124
  2. CAPECITABINE [Suspect]
     Dosage: 4300MG PER DAY
     Route: 048
     Dates: start: 20070124

REACTIONS (1)
  - PULMONARY EMBOLISM [None]
